FAERS Safety Report 15754733 (Version 3)
Quarter: 2020Q1

REPORT INFORMATION
  Report Type: Report from Study
  Country: NL (occurrence: NL)
  Receive Date: 20181224
  Receipt Date: 20200219
  Transmission Date: 20200409
  Serious: No
  Sender: FDA-Public Use
  Company Number: NL-ROCHE-2233414

PATIENT
  Age: 24 Year
  Sex: Female
  Weight: 83 kg

DRUGS (9)
  1. DEKORT [DEXAMETHASONE] [Concomitant]
     Dosage: ONCE BEFORE INFUSION?1 AMPULE
     Route: 042
     Dates: start: 20181130, end: 20181130
  2. OCRELIZUMAB. [Suspect]
     Active Substance: OCRELIZUMAB
     Indication: MULTIPLE SCLEROSIS
     Dosage: 300 MG/ 250ML?DOSE UNIT OF LAST OCRELIZUMAB ADMINISTERED PRIOR TO FLU ONSET: MG?TOTAL VOLUME UNIT OF
     Route: 042
     Dates: start: 20181130, end: 20181130
  3. PAROL [Concomitant]
     Active Substance: ACETAMINOPHEN
     Dosage: ONCE BEFORE INFUSION
     Route: 048
     Dates: start: 20181130, end: 20181130
  4. AVIJECT [Concomitant]
     Dosage: ONCE BEFORE INFUSION?1 AMPULE
     Route: 042
     Dates: start: 20181214, end: 20181214
  5. ASPIRIN. [Concomitant]
     Active Substance: ASPIRIN
     Route: 065
     Dates: start: 2017
  6. PHENIRAMINE [Concomitant]
     Active Substance: PHENIRAMINE
     Dosage: ONCE BEFORE INFUSION?1 AMPULE
     Route: 042
     Dates: start: 20181130, end: 20181130
  7. DEKORT [DEXAMETHASONE] [Concomitant]
     Dosage: ONCE BEFORE INFUSION?1 AMPULE
     Route: 042
     Dates: start: 20181214, end: 20181214
  8. OCRELIZUMAB. [Suspect]
     Active Substance: OCRELIZUMAB
     Dosage: 300 MG/ 250ML
     Route: 042
     Dates: start: 20181214, end: 20181214
  9. PAROL [Concomitant]
     Active Substance: ACETAMINOPHEN
     Indication: INFLUENZA
     Route: 065
     Dates: start: 20181217

REACTIONS (1)
  - Influenza [Recovered/Resolved]

NARRATIVE: CASE EVENT DATE: 20181215
